FAERS Safety Report 10579641 (Version 1)
Quarter: 2014Q4

REPORT INFORMATION
  Report Type: Spontaneous
  Country: US (occurrence: US)
  Receive Date: 20141112
  Receipt Date: 20141112
  Transmission Date: 20150529
  Serious: No
  Sender: FDA-Public Use
  Company Number: US-MALLINCKRODT-T201305426

PATIENT
  Age: 5 Year
  Sex: Male
  Weight: 23 kg

DRUGS (4)
  1. OFIRMEV [Suspect]
     Active Substance: ACETAMINOPHEN
     Indication: PAIN
     Route: 042
     Dates: start: 20131227, end: 20131227
  2. ZOFRAN /00955302/ [Concomitant]
     Dates: start: 20131227
  3. ANESTHETICS [Concomitant]
     Active Substance: UNSPECIFIED INGREDIENT
     Dates: start: 20131227
  4. DEMEROL [Concomitant]
     Active Substance: MEPERIDINE HYDROCHLORIDE
     Dates: start: 20131227

REACTIONS (1)
  - Incorrect dose administered [Recovered/Resolved]

NARRATIVE: CASE EVENT DATE: 20131227
